FAERS Safety Report 4869973-7 (Version None)
Quarter: 2005Q4

REPORT INFORMATION
  Report Type: 
  Country: None (occurrence: None)
  Receive Date: 20051223
  Receipt Date: 20051212
  Transmission Date: 20060501
  Serious: Yes (Hospitalization)
  Sender: FDA-Public Use
  Company Number: 2005PV005731

PATIENT
  Age: 41 Year
  Sex: Female
  Weight: 136.0791 kg

DRUGS (11)
  1. BYETTA [Suspect]
     Indication: DIABETES MELLITUS NON-INSULIN-DEPENDENT
     Dosage: 5 MCG;BID;SC
     Route: 058
     Dates: start: 20051014, end: 20051101
  2. HUMALOG [Concomitant]
  3. LANTUS [Concomitant]
  4. LASIX [Concomitant]
  5. ALTACE [Concomitant]
  6. COZAAR [Concomitant]
  7. NEXIUM [Concomitant]
  8. SEREVENT [Concomitant]
  9. PULMICORT [Concomitant]
  10. DIGOXIN [Concomitant]
  11. POTASSIUM CHLORIDE [Concomitant]

REACTIONS (10)
  - ABDOMINAL PAIN [None]
  - ANAEMIA [None]
  - CARDIAC FAILURE CONGESTIVE [None]
  - CARDIAC VALVE DISEASE [None]
  - CONGESTIVE CARDIOMYOPATHY [None]
  - PALPITATIONS [None]
  - PULMONARY HYPERTENSION [None]
  - VENTRICULAR DYSFUNCTION [None]
  - VENTRICULAR TACHYCARDIA [None]
  - WEIGHT INCREASED [None]
